FAERS Safety Report 9034494 (Version 1)
Quarter: 2013Q1

REPORT INFORMATION
  Report Type: Report from Study
  Country: NL (occurrence: NL)
  Receive Date: 20130129
  Receipt Date: 20130129
  Transmission Date: 20140127
  Serious: Yes (Hospitalization)
  Sender: FDA-Public Use
  Company Number: NL-BAXTER-2013BAX002718

PATIENT
  Age: 65 Year
  Sex: Male

DRUGS (6)
  1. KIOVIG 100 MG/ML SOLUTION FOR INFUSION INTRAVENOUS USE VIAL (GLASS) 30 [Suspect]
     Indication: CHRONIC INFLAMMATORY DEMYELINATING POLYRADICULONEUROPATHY
     Route: 042
     Dates: start: 20080204
  2. KIOVIG 100 MG/ML SOLUTION FOR INFUSION INTRAVENOUS USE VIAL (GLASS) 30 [Suspect]
     Indication: OFF LABEL USE
     Route: 042
     Dates: start: 20130104, end: 20130104
  3. KIOVIG 100 MG/ML SOLUTION FOR INFUSION INTRAVENOUS USE VIAL (GLASS) 30 [Suspect]
     Route: 042
     Dates: start: 20130116, end: 20130117
  4. KIOVIG 100 MG/ML SOLUTION POUR PERFUSION (20 G/200 ML) [Suspect]
     Indication: CHRONIC INFLAMMATORY DEMYELINATING POLYRADICULONEUROPATHY
     Route: 042
     Dates: start: 20080204
  5. KIOVIG 100 MG/ML SOLUTION POUR PERFUSION (20 G/200 ML) [Suspect]
     Indication: OFF LABEL USE
     Route: 042
     Dates: start: 20130104, end: 20130104
  6. KIOVIG 100 MG/ML SOLUTION POUR PERFUSION (20 G/200 ML) [Suspect]
     Route: 042
     Dates: start: 20130116, end: 20130117

REACTIONS (2)
  - Influenza [Recovering/Resolving]
  - Pneumonia [Recovering/Resolving]
